FAERS Safety Report 7717512-5 (Version None)
Quarter: 2011Q3

REPORT INFORMATION
  Report Type: 
  Country: None (occurrence: None)
  Receive Date: 20110830
  Receipt Date: 20110817
  Transmission Date: 20111222
  Serious: Yes (Hospitalization, Other)
  Sender: FDA-Public Use
  Company Number: FR-ELI_LILLY_AND_COMPANY-FR201106002581

PATIENT
  Age: 57 Year
  Sex: Male
  Weight: 52 kg

DRUGS (5)
  1. IRBESARTAN [Concomitant]
     Indication: HYPERTENSION
     Dosage: 150 MG, QD
     Route: 048
     Dates: start: 19900101
  2. PENTASA [Concomitant]
     Indication: CROHN'S DISEASE
     Dosage: 1000 MG, BID
     Route: 048
     Dates: start: 20060101
  3. NEXIUM [Concomitant]
     Indication: OESOPHAGITIS
     Dosage: 40 MG, QD
     Route: 048
     Dates: start: 20060101
  4. FORTEO [Suspect]
     Indication: OSTEOPOROSIS
     Dosage: 20 UG, QD
     Route: 058
     Dates: start: 20110502, end: 20110505
  5. FORTEO [Suspect]
     Dosage: 20 UG, QD
     Route: 058
     Dates: start: 20110101

REACTIONS (4)
  - INTESTINAL OBSTRUCTION [None]
  - ABDOMINAL PAIN [None]
  - INFECTIOUS PERITONITIS [None]
  - ASTHENIA [None]
